FAERS Safety Report 23419522 (Version 1)
Quarter: 2024Q1

REPORT INFORMATION
  Report Type: Spontaneous
  Country: CH (occurrence: None)
  Receive Date: 20240118
  Receipt Date: 20240118
  Transmission Date: 20240409
  Serious: Yes (Hospitalization)
  Sender: FDA-Public Use
  Company Number: 2024A011355

PATIENT
  Age: 90 Year
  Sex: Male

DRUGS (6)
  1. CALQUENCE [Interacting]
     Active Substance: ACALABRUTINIB
     Indication: Chronic lymphocytic leukaemia stage 4
     Dates: start: 202308, end: 20230827
  2. CALQUENCE [Interacting]
     Active Substance: ACALABRUTINIB
     Indication: Chronic lymphocytic leukaemia stage 4
     Dates: start: 20230920
  3. ELIQUIS [Interacting]
     Active Substance: APIXABAN
     Indication: Atrial fibrillation
     Dosage: D?J? PR?SENT EN AO?T 20223 POUR FA
     Dates: end: 20231116
  4. CORDARONE [Interacting]
     Active Substance: AMIODARONE HYDROCHLORIDE
     Indication: Atrial fibrillation
     Dosage: D?J? PR?SENT EN AO?T 20223 POUR FA
     Dates: end: 20231123
  5. ENOXAPARIN SODIUM [Interacting]
     Active Substance: ENOXAPARIN SODIUM
     Indication: Atrial fibrillation
     Dates: start: 20231120, end: 20231123
  6. ENOXAPARIN SODIUM [Interacting]
     Active Substance: ENOXAPARIN SODIUM
     Indication: Atrial fibrillation
     Dates: start: 20231124, end: 20231130

REACTIONS (6)
  - Drug interaction [Recovering/Resolving]
  - Haemorrhage [Not Recovered/Not Resolved]
  - Spontaneous haematoma [Not Recovered/Not Resolved]
  - Drug interaction [Recovered/Resolved]
  - Condition aggravated [Not Recovered/Not Resolved]
  - Medication error [Recovered/Resolved]

NARRATIVE: CASE EVENT DATE: 20230801
